APPROVED DRUG PRODUCT: CARTEOLOL HYDROCHLORIDE
Active Ingredient: CARTEOLOL HYDROCHLORIDE
Strength: 1%
Dosage Form/Route: SOLUTION/DROPS;OPHTHALMIC
Application: A075476 | Product #001
Applicant: SANDOZ INC
Approved: Jan 3, 2000 | RLD: No | RS: Yes | Type: RX